FAERS Safety Report 9298918 (Version 1)
Quarter: 2013Q2

REPORT INFORMATION
  Report Type: Spontaneous
  Country: US (occurrence: None)
  Receive Date: 20130515
  Receipt Date: 20130515
  Transmission Date: 20140414
  Serious: Yes (Other)
  Sender: FDA-Public Use
  Company Number: EUS-2013-00264

PATIENT
  Age: 11 Year
  Sex: Female

DRUGS (2)
  1. ERWINASE [Suspect]
     Indication: NON-HODGKIN^S LYMPHOMA
  2. DEXAMETHASONE (DEXAMETHASONE) [Concomitant]

REACTIONS (3)
  - Pancreatitis acute [None]
  - Tumour lysis syndrome [None]
  - Hyperglycaemia [None]
